FAERS Safety Report 6512564-2 (Version None)
Quarter: 2009Q4

REPORT INFORMATION
  Report Type: 
  Country: None (occurrence: None)
  Receive Date: 20091222
  Receipt Date: 20091216
  Transmission Date: 20100525
  Serious: Yes (Hospitalization, Disabling, Other)
  Sender: FDA-Public Use
  Company Number: US-MERCK-0905USA02195

PATIENT
  Age: 66 Year
  Sex: Female

DRUGS (3)
  1. FOSAMAX [Suspect]
     Indication: OSTEOPOROSIS
     Route: 048
     Dates: start: 19970107, end: 20010212
  2. FOSAMAX [Suspect]
     Route: 048
     Dates: start: 20050520, end: 20060626
  3. SALSALATE [Concomitant]
     Indication: OSTEOARTHRITIS
     Route: 065
     Dates: start: 19800101, end: 20010901

REACTIONS (57)
  - ABDOMINAL DISCOMFORT [None]
  - ACTINOMYCOSIS [None]
  - ADVERSE EVENT [None]
  - ANAEMIA [None]
  - ANGIOPATHY [None]
  - AXILLARY PAIN [None]
  - BLOOD CHOLESTEROL INCREASED [None]
  - BONE DENSITY DECREASED [None]
  - BONE FRAGMENTATION [None]
  - BRUXISM [None]
  - CANDIDIASIS [None]
  - CAROTID ARTERY OCCLUSION [None]
  - CONTUSION [None]
  - DENTAL FISTULA [None]
  - DRUG HYPERSENSITIVITY [None]
  - DRUG INTOLERANCE [None]
  - DYSGEUSIA [None]
  - EXOSTOSIS [None]
  - GASTRIC ULCER [None]
  - GINGIVAL BLEEDING [None]
  - GINGIVAL PAIN [None]
  - HEADACHE [None]
  - HYPERAESTHESIA [None]
  - HYPOKALAEMIA [None]
  - IMPAIRED HEALING [None]
  - JAW DISORDER [None]
  - LOOSE TOOTH [None]
  - LUNG DISORDER [None]
  - LUNG NEOPLASM MALIGNANT [None]
  - MENTAL DISORDER [None]
  - MOUTH ULCERATION [None]
  - MULTIPLE INJURIES [None]
  - MUSCULOSKELETAL CHEST PAIN [None]
  - MUSCULOSKELETAL PAIN [None]
  - MYALGIA [None]
  - NECK PAIN [None]
  - NECROSIS [None]
  - NEURALGIA [None]
  - ORAL INFECTION [None]
  - ORAL PAIN [None]
  - ORAL TORUS [None]
  - OSTEOMYELITIS [None]
  - OSTEONECROSIS [None]
  - PARANASAL SINUS HYPERSECRETION [None]
  - PERIODONTAL DISEASE [None]
  - PRECANCEROUS CELLS PRESENT [None]
  - PROCEDURAL PAIN [None]
  - SOFT TISSUE INJURY [None]
  - SPINAL DISORDER [None]
  - STOMATITIS [None]
  - SWELLING [None]
  - TOOTH DISORDER [None]
  - TOOTH INFECTION [None]
  - TOOTHACHE [None]
  - TRIGGER FINGER [None]
  - URINARY TRACT INFECTION [None]
  - VULVOVAGINAL MYCOTIC INFECTION [None]
